FAERS Safety Report 9019108 (Version 1)
Quarter: 2013Q1

REPORT INFORMATION
  Report Type: Report from Study
  Country: US (occurrence: US)
  Receive Date: 20130118
  Receipt Date: 20130118
  Transmission Date: 20140127
  Serious: Yes (Hospitalization)
  Sender: FDA-Public Use
  Company Number: US-JNJFOC-20130108688

PATIENT
  Age: 16 None
  Sex: Male
  Weight: 65.9 kg

DRUGS (4)
  1. REMICADE [Suspect]
     Indication: CROHN^S DISEASE
     Route: 042
     Dates: start: 20100913
  2. LEVSIN [Concomitant]
  3. ACETAMINOPHEN [Concomitant]
  4. DIPHENHYDRAMINE [Concomitant]

REACTIONS (1)
  - Crohn^s disease [Recovered/Resolved]
